FAERS Safety Report 4529954-X (Version None)
Quarter: 2004Q4

REPORT INFORMATION
  Report Type: 
  Country: None (occurrence: None)
  Receive Date: 20041215
  Receipt Date: 20041215
  Transmission Date: 20050328
  Serious: Yes (Death, Life-Threatening, Hospitalization)
  Sender: FDA-Public Use
  Company Number: None

PATIENT
  Age: 71 Year
  Sex: Female

DRUGS (4)
  1. DOCETAXEL [Suspect]
     Indication: NON-SMALL CELL LUNG CANCER
     Dosage: 36 MG/M2
     Dates: start: 20040823
  2. DOCETAXEL [Suspect]
     Indication: NON-SMALL CELL LUNG CANCER
     Dosage: 36 MG/M2
     Dates: start: 20040830
  3. DOCETAXEL [Suspect]
     Indication: NON-SMALL CELL LUNG CANCER
     Dosage: 36 MG/M2
     Dates: start: 20040907
  4. IRESSA [Suspect]
     Indication: NON-SMALL CELL LUNG CANCER
     Dosage: 250 MG QD
     Dates: start: 20040823, end: 20040910

REACTIONS (9)
  - ADENOCARCINOMA [None]
  - ASPIRATION PLEURAL CAVITY ABNORMAL [None]
  - BLOODY DISCHARGE [None]
  - CARDIAC TAMPONADE [None]
  - CIRCULATORY COLLAPSE [None]
  - HYPERTENSION [None]
  - PLEURAL EFFUSION [None]
  - PNEUMONIA [None]
  - WHITE BLOOD CELL COUNT INCREASED [None]
